FAERS Safety Report 5002345-3 (Version None)
Quarter: 2006Q2

REPORT INFORMATION
  Report Type: 
  Country: None (occurrence: None)
  Receive Date: 20060510
  Receipt Date: 20060427
  Transmission Date: 20061013
  Serious: Yes (Hospitalization, Disabling, Other)
  Sender: FDA-Public Use
  Company Number: 2006058174

PATIENT
  Age: 60 Year
  Sex: Female
  Weight: 86.1834 kg

DRUGS (6)
  1. DEPO-MEDROL [Suspect]
     Indication: PAIN IN EXTREMITY
     Dosage: TWICE
     Dates: start: 20060210
  2. IBUPROFEN [Concomitant]
  3. LISINOPRIL [Concomitant]
  4. METOPROLOL SUCCINATE [Concomitant]
  5. PLAVIX [Concomitant]
  6. ASPIRIN [Concomitant]

REACTIONS (5)
  - BALANCE DISORDER [None]
  - BURNING SENSATION [None]
  - HYPOAESTHESIA [None]
  - PARAPLEGIA [None]
  - PROCEDURAL COMPLICATION [None]
